FAERS Safety Report 21708016 (Version 1)
Quarter: 2022Q4

REPORT INFORMATION
  Report Type: Spontaneous
  Country: None (occurrence: US)
  Receive Date: 20221209
  Receipt Date: 20221209
  Transmission Date: 20230113
  Serious: Yes (Disabling, Other)
  Sender: FDA-Public Use
  Company Number: US-Vitruvias Therapeutics-2135741

PATIENT

DRUGS (2)
  1. CYANOCOBALAMIN [Suspect]
     Active Substance: CYANOCOBALAMIN
  2. CYANOCOBALAMIN [Suspect]
     Active Substance: CYANOCOBALAMIN

REACTIONS (5)
  - Condition aggravated [None]
  - Chromaturia [None]
  - Injection site mass [None]
  - Product quality issue [None]
  - Drug ineffective [None]
